FAERS Safety Report 17063495 (Version 2)
Quarter: 2019Q4

REPORT INFORMATION
  Report Type: Spontaneous
  Country: US (occurrence: US)
  Receive Date: 20191122
  Receipt Date: 20191219
  Transmission Date: 20200122
  Serious: No
  Sender: FDA-Public Use
  Company Number: US-TAKEDA-2019TUS066235

PATIENT
  Sex: Male

DRUGS (2)
  1. NINLARO [Suspect]
     Active Substance: IXAZOMIB CITRATE
     Indication: PLASMA CELL MYELOMA
  2. NINLARO [Suspect]
     Active Substance: IXAZOMIB CITRATE
     Indication: IDIOPATHIC PULMONARY FIBROSIS
     Dosage: 3 MILLIGRAM, 1/WEEK
     Route: 048

REACTIONS (2)
  - Sinusitis [Unknown]
  - Nasopharyngitis [Recovered/Resolved]
